FAERS Safety Report 25584140 (Version 4)
Quarter: 2025Q4

REPORT INFORMATION
  Report Type: Report from Study
  Country: US (occurrence: US)
  Receive Date: 20250721
  Receipt Date: 20251110
  Transmission Date: 20260118
  Serious: Yes (Hospitalization)
  Sender: TAKEDA
  Company Number: US-TAKEDA-2025TUS063791

PATIENT
  Age: 43 Year
  Sex: Female

DRUGS (4)
  1. MARIBAVIR [Suspect]
     Active Substance: MARIBAVIR
     Indication: Cytomegalovirus infection
     Dosage: UNK UNK, BID
     Dates: start: 20240227
  2. MARIBAVIR [Suspect]
     Active Substance: MARIBAVIR
     Dosage: UNK
  3. MARIBAVIR [Suspect]
     Active Substance: MARIBAVIR
     Dosage: UNK
  4. MARIBAVIR [Suspect]
     Active Substance: MARIBAVIR
     Dosage: UNK

REACTIONS (3)
  - Bite [Unknown]
  - Product physical issue [Unknown]
  - Mass [Unknown]

NARRATIVE: CASE EVENT DATE: 20250715
